FAERS Safety Report 14180730 (Version 2)
Quarter: 2018Q1

REPORT INFORMATION
  Report Type: Report from Study
  Country: US (occurrence: US)
  Receive Date: 20171110
  Receipt Date: 20180209
  Transmission Date: 20180508
  Serious: Yes (Other)
  Sender: FDA-Public Use
  Company Number: US-ELI_LILLY_AND_COMPANY-US201711000338

PATIENT
  Age: 72 Year
  Sex: Female

DRUGS (5)
  1. TERIPARATIDE [Suspect]
     Active Substance: TERIPARATIDE
     Indication: OSTEOPOROSIS
     Dosage: 20 UG, DAILY
     Route: 058
     Dates: start: 20171006
  2. TERIPARATIDE [Suspect]
     Active Substance: TERIPARATIDE
     Dosage: 20 UG, DAILY
     Route: 058
     Dates: end: 20171101
  3. HYOPHEN                            /00586701/ [Concomitant]
     Indication: PRODUCT USED FOR UNKNOWN INDICATION
  4. ESTRACE [Concomitant]
     Active Substance: ESTRADIOL
     Indication: PRODUCT USED FOR UNKNOWN INDICATION
     Dosage: UNK
  5. DIAZEPAM. [Concomitant]
     Active Substance: DIAZEPAM
     Indication: PRODUCT USED FOR UNKNOWN INDICATION
     Dosage: 2 MG, UNKNOWN

REACTIONS (17)
  - Mobility decreased [Unknown]
  - Fatigue [Not Recovered/Not Resolved]
  - Malaise [Unknown]
  - Decreased appetite [Unknown]
  - Depression [Unknown]
  - Quality of life decreased [Unknown]
  - Feeling abnormal [Unknown]
  - Dyspareunia [Recovered/Resolved]
  - Mental impairment [Recovered/Resolved]
  - Hypotension [Unknown]
  - Suicidal ideation [Recovering/Resolving]
  - Confusional state [Unknown]
  - Hypoaesthesia [Unknown]
  - Asthenia [Unknown]
  - Genital rash [Recovered/Resolved]
  - Blood pressure fluctuation [Unknown]
  - Dizziness [Unknown]

NARRATIVE: CASE EVENT DATE: 20171006
